FAERS Safety Report 8378070-8 (Version None)
Quarter: 2012Q2

REPORT INFORMATION
  Report Type: 
  Country: None (occurrence: None)
  Receive Date: 20120522
  Receipt Date: 20120508
  Transmission Date: 20120825
  Serious: Yes (Hospitalization, Other)
  Sender: FDA-Public Use
  Company Number: US-ROCHE-1068389

PATIENT
  Sex: Male

DRUGS (6)
  1. SINGULAIR [Concomitant]
     Route: 065
  2. ATROVENT [Concomitant]
     Route: 065
  3. VENTOLIN [Concomitant]
     Route: 065
  4. SYMBICORT [Concomitant]
     Route: 065
  5. ZYRTEC [Concomitant]
     Route: 065
  6. OMALIZUMAB [Suspect]
     Indication: ASTHMA
     Route: 058
     Dates: start: 20120406

REACTIONS (3)
  - ASTHMA [None]
  - PALPITATIONS [None]
  - CHEST DISCOMFORT [None]
